FAERS Safety Report 21423536 (Version 8)
Quarter: 2024Q3

REPORT INFORMATION
  Report Type: Report from Study
  Country: US (occurrence: US)
  Receive Date: 20221007
  Receipt Date: 20240820
  Transmission Date: 20241017
  Serious: No
  Sender: NOVARTIS
  Company Number: US-NOVARTISTESTPH-NVSC2022US226892

PATIENT
  Age: 45 Year
  Sex: Male

DRUGS (2)
  1. ILARIS [Suspect]
     Active Substance: CANAKINUMAB
     Indication: Pyrexia
     Dosage: 150 MG, OTHER (Q 6 WEEKS)
     Route: 058
     Dates: start: 20191030
  2. ILARIS [Suspect]
     Active Substance: CANAKINUMAB
     Dosage: 150 MG, OTHER (Q 8 WEEKS)
     Route: 058

REACTIONS (8)
  - Inflammation [Unknown]
  - Chest discomfort [Not Recovered/Not Resolved]
  - Condition aggravated [Unknown]
  - Back pain [Not Recovered/Not Resolved]
  - Nasopharyngitis [Unknown]
  - Influenza [Unknown]
  - Pyrexia [Unknown]
  - Dyspnoea [Recovered/Resolved]

NARRATIVE: CASE EVENT DATE: 20220921
